FAERS Safety Report 9194244 (Version 1)
Quarter: 2013Q1

REPORT INFORMATION
  Report Type: Spontaneous
  Country: FR (occurrence: FR)
  Receive Date: 20130327
  Receipt Date: 20130327
  Transmission Date: 20140127
  Serious: Yes (Hospitalization)
  Sender: FDA-Public Use
  Company Number: PHHY2013FR029250

PATIENT
  Age: 52 Year
  Sex: Female

DRUGS (1)
  1. TRAMADOL SANDOZ [Suspect]
     Indication: PAIN
     Dosage: 100 MG, TOTAL DOSE
     Route: 048
     Dates: start: 20130216, end: 20130216

REACTIONS (4)
  - Hot flush [Recovered/Resolved]
  - Vertigo [Recovered/Resolved]
  - Malaise [Recovered/Resolved]
  - Nausea [Recovered/Resolved]
